FAERS Safety Report 6538203-2 (Version None)
Quarter: 2010Q1

REPORT INFORMATION
  Report Type: 
  Country: None (occurrence: None)
  Receive Date: 20100114
  Receipt Date: 20100112
  Transmission Date: 20100710
  Serious: Yes (Hospitalization, Other)
  Sender: FDA-Public Use
  Company Number: US-B.I. PHARMACEUTICALS,INC./RIDGEFIELD-2009-BP-14724BP

PATIENT
  Sex: Female

DRUGS (10)
  1. COMBIVENT [Suspect]
     Indication: CHRONIC OBSTRUCTIVE PULMONARY DISEASE
     Dates: start: 20070101
  2. METOPROLOL [Concomitant]
  3. HYDROCHLOROTHIAZIDE [Concomitant]
  4. ZETIA [Concomitant]
  5. POTASSIUM [Concomitant]
  6. ALLEGRA [Concomitant]
  7. BABY ASPIRIN [Concomitant]
  8. VITAMIN B COMPLEX CAP [Concomitant]
  9. PATANOL [Concomitant]
  10. RESTASIS [Concomitant]

REACTIONS (2)
  - FATIGUE [None]
  - LUNG NEOPLASM MALIGNANT [None]
